FAERS Safety Report 25718192 (Version 1)
Quarter: 2025Q3

REPORT INFORMATION
  Report Type: Spontaneous
  Country: US (occurrence: US)
  Receive Date: 20250823
  Receipt Date: 20250823
  Transmission Date: 20251020
  Serious: No
  Sender: SANOFI AVENTIS
  Company Number: US-SA-2025SA250392

PATIENT
  Age: 9 Year
  Sex: Male

DRUGS (4)
  1. DUPIXENT [Suspect]
     Active Substance: DUPILUMAB
     Indication: Dermatitis atopic
     Dosage: 200 MG, QOW
     Route: 058
     Dates: start: 20240103
  2. BUDESONIDE\FORMOTEROL [Concomitant]
     Active Substance: BUDESONIDE\FORMOTEROL
  3. FLOVENT HFA [Concomitant]
     Active Substance: FLUTICASONE PROPIONATE
  4. Triamcinolon [Concomitant]

REACTIONS (2)
  - Sleep disorder due to a general medical condition [Unknown]
  - Drug ineffective [Unknown]
